FAERS Safety Report 22295700 (Version 1)
Quarter: 2023Q2

REPORT INFORMATION
  Report Type: Spontaneous
  Country: US (occurrence: None)
  Receive Date: 20230505
  Receipt Date: 20230505
  Transmission Date: 20230722
  Serious: Yes (Death)
  Sender: FDA-Public Use
  Company Number: None

PATIENT
  Sex: Male

DRUGS (2)
  1. STIVARGA [Suspect]
     Active Substance: REGORAFENIB
     Indication: Metastases to liver
     Dosage: FREQUENCY : AS DIRECTED;?TAKE 2 TABLETS BY MOUTH DAILY FOR 21 DAYS OF EACH 28 DAY CYCLE (3 WEEKS ON
     Route: 048
     Dates: start: 202302
  2. STIVARGA [Suspect]
     Active Substance: REGORAFENIB
     Indication: Colon cancer

REACTIONS (1)
  - Death [None]
